FAERS Safety Report 5891750-9 (Version None)
Quarter: 2008Q3

REPORT INFORMATION
  Report Type: 
  Country: None (occurrence: None)
  Receive Date: 20080918
  Receipt Date: 20080904
  Transmission Date: 20090109
  Serious: Yes (Other)
  Sender: FDA-Public Use
  Company Number: 1000000827

PATIENT
  Age: 81 Year
  Sex: Female

DRUGS (6)
  1. MEMANTINE HCL [Suspect]
     Indication: DEMENTIA
     Dosage: 5-10 MG DAILY, ORAL
     Route: 048
     Dates: start: 20080616, end: 20080710
  2. ARICEPT (TABLETS) [Concomitant]
  3. SEROQUEL [Concomitant]
  4. MARCOUMAR (TABLETS) [Concomitant]
  5. CONCOR (TABLETS) [Concomitant]
  6. GERIAVIT (TABLETS) [Concomitant]

REACTIONS (2)
  - EPILEPSY [None]
  - LOSS OF CONSCIOUSNESS [None]
